FAERS Safety Report 16234030 (Version 1)
Quarter: 2019Q2

REPORT INFORMATION
  Report Type: Spontaneous
  Country: JP (occurrence: JP)
  Receive Date: 20190424
  Receipt Date: 20190424
  Transmission Date: 20190711
  Serious: Yes (Hospitalization, Other)
  Sender: FDA-Public Use
  Company Number: JP-009507513-1403JPN009371

PATIENT
  Age: 75 Year
  Sex: Female
  Weight: 44 kg

DRUGS (23)
  1. CEFCAPENE PIVOXIL HYDROCHLORIDE HYDRATE [Concomitant]
     Active Substance: CEFCAPENE PIVOXIL HYDROCHLORIDE HYDRATE
     Indication: INFECTION PROPHYLAXIS
     Dosage: 100 MILLIGRAM, TID
     Route: 048
     Dates: start: 20140124, end: 20140129
  2. ELNEOPA NO.1 [Concomitant]
     Indication: MALNUTRITION
     Dosage: 1 LITER, QD
     Route: 042
     Dates: start: 20140131, end: 20140203
  3. FUROSEMIDE. [Concomitant]
     Active Substance: FUROSEMIDE
     Indication: FLUID RETENTION
     Dosage: 1 MILLILITER, QD
     Route: 042
     Dates: start: 20140131, end: 20140217
  4. CARBOCISTEINE [Concomitant]
     Active Substance: CARBOCYSTEINE
     Indication: BRONCHITIS CHRONIC
     Dosage: 500 MILLIGRAM, TID
     Route: 048
     Dates: start: 20130813
  5. TOWAMIN [Concomitant]
     Active Substance: ATENOLOL
     Indication: TACHYCARDIA
     Dosage: 12.5 MILLIGRAM, QD
     Route: 048
     Dates: start: 20131101
  6. TEICOPLANIN [Concomitant]
     Active Substance: TEICOPLANIN
     Indication: SEPSIS
     Dosage: 400 MILLIGRAM, QD
     Route: 041
     Dates: start: 20140130, end: 20140212
  7. NEUTROGIN [Concomitant]
     Active Substance: LENOGRASTIM
     Indication: WHITE BLOOD CELL COUNT DECREASED
     Dosage: 100 MICROGRAM, QD
     Route: 042
     Dates: start: 20140201, end: 20140302
  8. DAIKENCHUTO [Concomitant]
     Active Substance: HERBALS
     Indication: CONSTIPATION
     Dosage: 2.5 GRAM, TID
     Route: 048
  9. FULCALIQ [Concomitant]
     Active Substance: AMINO ACIDS\CARBOHYDRATES\ELECTROLYTES NOS\VITAMINS
     Indication: MALNUTRITION
     Dosage: 1.1 LITER, QD
     Route: 042
     Dates: start: 20140204, end: 20140211
  10. FLAGYL [Concomitant]
     Active Substance: METRONIDAZOLE\METRONIDAZOLE HYDROCHLORIDE
     Indication: PSEUDOMEMBRANOUS COLITIS
     Dosage: 250 MILLIGRAM, BID
     Route: 048
     Dates: start: 20140202, end: 20140210
  11. FLUCONAZOLE. [Concomitant]
     Active Substance: FLUCONAZOLE
     Indication: FEBRILE NEUTROPENIA
     Dosage: 100 MILLIGRAM, BIM
     Route: 048
     Dates: start: 20130821, end: 20140129
  12. FLUNITRAZEPAM [Concomitant]
     Active Substance: FLUNITRAZEPAM
     Indication: INSOMNIA
     Dosage: 1 MILLIGRAM, QD
     Route: 048
     Dates: start: 20130906
  13. TAKEPRON [Concomitant]
     Active Substance: LANSOPRAZOLE
     Indication: PROPHYLAXIS AGAINST GASTROINTESTINAL ULCER
     Dosage: 15 MILLIGRAM, QD
     Route: 048
  14. ISCOTIN [Concomitant]
     Active Substance: ISONIAZID
     Indication: ANTIBIOTIC PROPHYLAXIS
     Route: 048
     Dates: start: 20130821
  15. DAIPHEN [Concomitant]
     Active Substance: SULFAMETHOXAZOLE\TRIMETHOPRIM
     Indication: PROPHYLAXIS
     Dosage: 1 GRAM, QD
     Route: 048
     Dates: start: 20130821
  16. BFLUID [Suspect]
     Active Substance: AMINO ACIDS\DEXTROSE\ELECTROLYTES NOS\VITAMINS
     Indication: MALNUTRITION
     Dosage: 1.5 LITER, QD
     Route: 041
     Dates: start: 20140129, end: 20140204
  17. CEFEPIME [Suspect]
     Active Substance: CEFEPIME HYDROCHLORIDE
     Indication: FEBRILE NEUTROPENIA
     Dosage: 2 GRAM, BID
     Route: 042
     Dates: start: 20140129, end: 20140211
  18. ADONA [Concomitant]
     Indication: HAEMORRHAGIC DIATHESIS
     Dosage: 30 MILLIGRAM, TID
     Route: 048
     Dates: start: 20131003
  19. SINGULAIR [Concomitant]
     Active Substance: MONTELUKAST SODIUM
     Indication: BRONCHITIS CHRONIC
     Route: 048
  20. ETIZOLAM [Concomitant]
     Active Substance: ETIZOLAM
     Indication: INSOMNIA
     Dosage: 0.5 MILLIGRAM, QD
     Route: 048
     Dates: start: 20131105
  21. CANCIDAS [Suspect]
     Active Substance: CASPOFUNGIN ACETATE
     Indication: FEBRILE NEUTROPENIA
     Dosage: 50 MILLIGRAM, QD
     Route: 041
     Dates: start: 20140130, end: 20140217
  22. CANCIDAS [Suspect]
     Active Substance: CASPOFUNGIN ACETATE
     Indication: FEBRILE NEUTROPENIA
     Dosage: 70 MILLIGRAM, QD
     Route: 041
     Dates: start: 20140129, end: 20140129
  23. GASMOTIN [Concomitant]
     Active Substance: MOSAPRIDE CITRATE
     Indication: CONSTIPATION
     Dosage: 5 MILLIGRAM, TID
     Route: 048

REACTIONS (5)
  - Pneumonia [Recovered/Resolved]
  - Sepsis [Unknown]
  - Pseudomembranous colitis [Recovered/Resolved]
  - Fluid retention [Recovered/Resolved]
  - Malnutrition [Unknown]

NARRATIVE: CASE EVENT DATE: 20140131
